FAERS Safety Report 6141814-X (Version None)
Quarter: 2009Q2

REPORT INFORMATION
  Report Type: 
  Country: None (occurrence: None)
  Receive Date: 20090401
  Receipt Date: 20090401
  Transmission Date: 20091009
  Serious: Yes (Hospitalization)
  Sender: FDA-Public Use
  Company Number: None

PATIENT
  Age: 31 Year
  Sex: Female
  Weight: 65.7716 kg

DRUGS (2)
  1. GEMCITABINE HCL [Suspect]
     Indication: BREAST CANCER METASTATIC
     Dosage: 1250MG/M2 D1, D8 Q21D CYCLE IV
     Route: 042
     Dates: start: 20081215, end: 20090316
  2. LAPATINIB 250MG TABLETS [Suspect]
     Indication: BREAST CANCER METASTATIC
     Dosage: 1250MG DAILY PO
     Route: 048
     Dates: start: 20081215, end: 20090329

REACTIONS (3)
  - ABDOMINAL PAIN [None]
  - CHOLELITHIASIS [None]
  - WHITE BLOOD CELL COUNT INCREASED [None]
